FAERS Safety Report 14319388 (Version 1)
Quarter: 2017Q4

REPORT INFORMATION
  Report Type: Spontaneous
  Country: US (occurrence: US)
  Receive Date: 20171221
  Receipt Date: 20171221
  Transmission Date: 20180321
  Serious: No
  Sender: FDA-Public Use
  Company Number: None

PATIENT
  Age: 54 Year
  Sex: Female

DRUGS (13)
  1. OMEPRAZOLE. [Concomitant]
     Active Substance: OMEPRAZOLE
  2. ROSUVASTATIN. [Concomitant]
     Active Substance: ROSUVASTATIN
  3. MONTELUKAST [Concomitant]
     Active Substance: MONTELUKAST SODIUM
  4. XELJANZ [Suspect]
     Active Substance: TOFACITINIB CITRATE
     Indication: RHEUMATOID ARTHRITIS
     Route: 048
     Dates: start: 20170725
  5. ENOXAPARIN [Concomitant]
     Active Substance: ENOXAPARIN
  6. DILTIAZEM. [Concomitant]
     Active Substance: DILTIAZEM
  7. FOLBIC [Concomitant]
     Active Substance: CYANOCOBALAMIN\FOLIC ACID\PYRIDOXINE
  8. PROAIR HFA [Concomitant]
     Active Substance: ALBUTEROL SULFATE
  9. ADVAIR DISKU AER [Concomitant]
  10. DICLOFENAC [Concomitant]
     Active Substance: DICLOFENAC
  11. LISINOPRIL. [Concomitant]
     Active Substance: LISINOPRIL
  12. MYRBETRIQ [Concomitant]
     Active Substance: MIRABEGRON
  13. TAMSULOSIN [Concomitant]
     Active Substance: TAMSULOSIN

REACTIONS (2)
  - Shoulder arthroplasty [None]
  - Pain [None]

NARRATIVE: CASE EVENT DATE: 20171220
